FAERS Safety Report 23227048 (Version 1)
Quarter: 2023Q4

REPORT INFORMATION
  Report Type: Report from Study
  Country: DK (occurrence: DK)
  Receive Date: 20231124
  Receipt Date: 20231124
  Transmission Date: 20240110
  Serious: Yes (Life-Threatening)
  Sender: FDA-Public Use
  Company Number: DK-TEVA-2023-DK-2949270

PATIENT
  Age: 30 Year
  Sex: Female

DRUGS (2)
  1. LANSOPRAZOLE [Suspect]
     Active Substance: LANSOPRAZOLE
     Indication: Product used for unknown indication
     Route: 065
  2. ACETAMINOPHEN [Suspect]
     Active Substance: ACETAMINOPHEN
     Indication: Product used for unknown indication
     Route: 065

REACTIONS (8)
  - Allergic reaction to excipient [Unknown]
  - Anaphylactic reaction [Unknown]
  - Flushing [Unknown]
  - Pruritus allergic [Unknown]
  - Urticaria [Unknown]
  - Angioedema [Unknown]
  - Hypotension [Unknown]
  - Loss of consciousness [Unknown]
